FAERS Safety Report 16600480 (Version 2)
Quarter: 2019Q3

REPORT INFORMATION
  Report Type: Report from Study
  Country: AU (occurrence: AU)
  Receive Date: 20190720
  Receipt Date: 20190824
  Transmission Date: 20191004
  Serious: Yes (Hospitalization)
  Sender: FDA-Public Use
  Company Number: AU-BRISTOL-MYERS SQUIBB COMPANY-BMS-2019-070188

PATIENT
  Age: 78 Year
  Sex: Female

DRUGS (2)
  1. POTASSIUM CHLORIDE. [Concomitant]
     Active Substance: POTASSIUM CHLORIDE
     Indication: PRODUCT USED FOR UNKNOWN INDICATION
     Route: 065
  2. NIVOLUMAB [Suspect]
     Active Substance: NIVOLUMAB
     Indication: RENAL CELL CARCINOMA
     Dosage: 240 MILLIGRAM
     Route: 065
     Dates: start: 20190607, end: 20190704

REACTIONS (1)
  - Mobility decreased [Recovered/Resolved with Sequelae]

NARRATIVE: CASE EVENT DATE: 20190712
